FAERS Safety Report 5861345-1 (Version None)
Quarter: 2008Q3

REPORT INFORMATION
  Report Type: 
  Country: None (occurrence: None)
  Receive Date: 20080827
  Receipt Date: 20080414
  Transmission Date: 20090109
  Serious: No
  Sender: FDA-Public Use
  Company Number: US-ABBOTT-08P-163-0447092-00

PATIENT
  Sex: Female
  Weight: 91.708 kg

DRUGS (1)
  1. NIASPAN [Suspect]
     Indication: BLOOD CHOLESTEROL INCREASED
     Dosage: 1500 MG DAILY
     Route: 048
     Dates: start: 20080101

REACTIONS (1)
  - ABNORMAL SENSATION IN EYE [None]
